FAERS Safety Report 17228836 (Version 2)
Quarter: 2020Q3

REPORT INFORMATION
  Report Type: Spontaneous
  Country: US (occurrence: US)
  Receive Date: 20200103
  Receipt Date: 20200826
  Transmission Date: 20201102
  Serious: Yes (Other)
  Sender: FDA-Public Use
  Company Number: US-SA-2020SA000323

PATIENT

DRUGS (16)
  1. PANTOPRAZOLE [Concomitant]
     Active Substance: PANTOPRAZOLE
  2. CARAFATE [Concomitant]
     Active Substance: SUCRALFATE
  3. NYSTATIN. [Concomitant]
     Active Substance: NYSTATIN
  4. DOXYCYCLIN AL [DOXYCYCLINE HYDROCHLORIDE] [Concomitant]
  5. SUCRALFATE. [Concomitant]
     Active Substance: SUCRALFATE
  6. CEPHALEXIN [CEFALEXIN] [Concomitant]
     Active Substance: CEPHALEXIN
  7. PREDNISONE. [Concomitant]
     Active Substance: PREDNISONE
  8. PROCHLORPERAZ [Concomitant]
     Active Substance: PROCHLORPERAZINE MALEATE
  9. FLUCONAZOLE. [Concomitant]
     Active Substance: FLUCONAZOLE
  10. AZITHROMYCIN ANHYDROUS. [Concomitant]
     Active Substance: AZITHROMYCIN ANHYDROUS
  11. ACETAMIN [Concomitant]
     Active Substance: ACETAMINOPHEN
  12. DUPIXENT [Suspect]
     Active Substance: DUPILUMAB
     Indication: ASTHMA
     Dosage: 300 MG, QOW
     Route: 058
     Dates: start: 20191201
  13. AMOXYCLAV [AMOXICILLIN SODIUM;CLAVULANATE POTASSIUM] [Concomitant]
  14. LEVOFLOXACIN. [Concomitant]
     Active Substance: LEVOFLOXACIN
  15. TRAMADOL. [Concomitant]
     Active Substance: TRAMADOL
  16. SCOPOLAMINE [HYOSCINE] [Concomitant]
     Active Substance: SCOPOLAMINE

REACTIONS (3)
  - Upper respiratory fungal infection [Not Recovered/Not Resolved]
  - Oesophagogastric fundoplasty [Not Recovered/Not Resolved]
  - Candida infection [Unknown]

NARRATIVE: CASE EVENT DATE: 20191202
